FAERS Safety Report 7303446-7 (Version None)
Quarter: 2011Q1

REPORT INFORMATION
  Report Type: 
  Country: None (occurrence: None)
  Receive Date: 20110221
  Receipt Date: 20101115
  Transmission Date: 20110831
  Serious: No
  Sender: FDA-Public Use
  Company Number: US-BAYER-2010-001037

PATIENT
  Sex: Female

DRUGS (1)
  1. MIRENA [Suspect]
     Dosage: UNK
     Dates: start: 20100301

REACTIONS (3)
  - DEVICE DISLOCATION [None]
  - VAGINAL HAEMORRHAGE [None]
  - DEVICE BREAKAGE [None]
